FAERS Safety Report 19972607 (Version 2)
Quarter: 2022Q1

REPORT INFORMATION
  Report Type: Spontaneous
  Country: CA (occurrence: CA)
  Receive Date: 20211020
  Receipt Date: 20220126
  Transmission Date: 20220423
  Serious: Yes (Life-Threatening)
  Sender: FDA-Public Use
  Company Number: CA-JNJFOC-20211025161

PATIENT
  Age: 3 Decade
  Sex: Male

DRUGS (2)
  1. MENS ROGAINE UNSCENTED FORMULA [Suspect]
     Active Substance: MINOXIDIL
     Indication: Hypotrichosis
     Route: 061
  2. MINOXIDIL [Suspect]
     Active Substance: MINOXIDIL
     Indication: Hypotrichosis
     Route: 061

REACTIONS (18)
  - Alopecia [Not Recovered/Not Resolved]
  - Apathy [Not Recovered/Not Resolved]
  - Collagen disorder [Not Recovered/Not Resolved]
  - Connective tissue disorder [Not Recovered/Not Resolved]
  - Dandruff [Not Recovered/Not Resolved]
  - Depression [Not Recovered/Not Resolved]
  - Erectile dysfunction [Not Recovered/Not Resolved]
  - Fatigue [Not Recovered/Not Resolved]
  - Lethargy [Not Recovered/Not Resolved]
  - Loss of libido [Not Recovered/Not Resolved]
  - Organic erectile dysfunction [Not Recovered/Not Resolved]
  - Partner stress [Not Recovered/Not Resolved]
  - Penis disorder [Not Recovered/Not Resolved]
  - Pruritus [Not Recovered/Not Resolved]
  - Skin degenerative disorder [Not Recovered/Not Resolved]
  - Skin exfoliation [Not Recovered/Not Resolved]
  - Sleep disorder [Not Recovered/Not Resolved]
  - Suicidal ideation [Not Recovered/Not Resolved]

NARRATIVE: CASE EVENT DATE: 20150127
